FAERS Safety Report 17636330 (Version 3)
Quarter: 2020Q4

REPORT INFORMATION
  Report Type: Report from Study
  Country: GB (occurrence: GB)
  Receive Date: 20200407
  Receipt Date: 20201030
  Transmission Date: 20210113
  Serious: Yes (Disabling)
  Sender: FDA-Public Use
  Company Number: GB-ROCHE-2574169

PATIENT
  Age: 71 Year
  Sex: Female
  Weight: 107 kg

DRUGS (8)
  1. SOLIFENACIN [Concomitant]
     Active Substance: SOLIFENACIN
     Route: 048
     Dates: start: 20140224
  2. RAMIPRIL. [Concomitant]
     Active Substance: RAMIPRIL
     Route: 048
     Dates: start: 20040625
  3. LERCANIDIPINE [Concomitant]
     Active Substance: LERCANIDIPINE
     Route: 048
     Dates: start: 20110526, end: 20200314
  4. TENECTEPLASE [Suspect]
     Active Substance: TENECTEPLASE
     Indication: ISCHAEMIC STROKE
     Dosage: W/A SINGLE WEIGHT ADJUSTED BOLUS DOSE UP TO 25 MG (1 IN 1)
     Route: 042
     Dates: start: 20200313
  5. METFORMIN [Concomitant]
     Active Substance: METFORMIN HYDROCHLORIDE
     Dates: start: 20120814
  6. DOXAZOCIN [Concomitant]
     Active Substance: DOXAZOSIN MESYLATE
     Route: 048
     Dates: start: 20180913, end: 20200316
  7. BALSALAZIDE [Concomitant]
     Active Substance: BALSALAZIDE
     Route: 048
     Dates: start: 20031006
  8. BALSALAZIDE [Concomitant]
     Active Substance: BALSALAZIDE
     Route: 048
     Dates: start: 20131006

REACTIONS (1)
  - Neurological decompensation [Recovered/Resolved]

NARRATIVE: CASE EVENT DATE: 20200314
